FAERS Safety Report 9950904 (Version 2)
Quarter: 2014Q1

REPORT INFORMATION
  Report Type: Report from Study
  Country: US (occurrence: US)
  Receive Date: 20140304
  Receipt Date: 20140304
  Transmission Date: 20141002
  Serious: Yes (Hospitalization, Other)
  Sender: FDA-Public Use
  Company Number: US-ABBVIE-13P-163-1068166-00

PATIENT
  Age: 26 Year
  Sex: Male

DRUGS (2)
  1. HUMIRA [Suspect]
     Indication: CROHN^S DISEASE
     Dates: start: 20130118
  2. HUMIRA [Suspect]

REACTIONS (3)
  - Crohn^s disease [Recovered/Resolved]
  - Asthenia [Unknown]
  - Arthritis [Unknown]
